FAERS Safety Report 4381641-7 (Version None)
Quarter: 2004Q2

REPORT INFORMATION
  Report Type: 
  Country: None (occurrence: None)
  Receive Date: 20040603
  Receipt Date: 20030821
  Transmission Date: 20050107
  Serious: Yes (Hospitalization)
  Sender: FDA-Public Use
  Company Number: 200317620US

PATIENT
  Age: 52 Year
  Sex: Female

DRUGS (3)
  1. ENOXAPARIN SODIUM [Suspect]
     Indication: PULMONARY EMBOLISM
     Dosage: 1 MG/KG Q12H SC
     Route: 058
  2. ENOXAPARIN SODIUM [Suspect]
     Indication: PULMONARY EMBOLISM
     Dosage: 40 MG QD SC
     Route: 058
  3. PAIN MEDICATION NOS [Concomitant]

REACTIONS (1)
  - HAEMATOMA [None]
